FAERS Safety Report 8603891 (Version 6)
Quarter: 2013Q2

REPORT INFORMATION
  Report Type: Spontaneous
  Country: US (occurrence: US)
  Receive Date: 20120607
  Receipt Date: 20130417
  Transmission Date: 20140414
  Serious: Yes (Hospitalization, Disabling, Other)
  Sender: FDA-Public Use
  Company Number: US-009507513-1206USA00836

PATIENT
  Sex: Female
  Weight: 48.73 kg

DRUGS (5)
  1. FOSAMAX [Suspect]
     Indication: OSTEOPOROSIS
     Dosage: 70 MG, QW
     Route: 048
     Dates: start: 200101, end: 200803
  2. FOSAMAX [Suspect]
     Indication: OSTEOPOROSIS
     Dosage: UNK
     Route: 048
     Dates: start: 200803, end: 201006
  3. FOSAMAX PLUS D [Suspect]
     Indication: OSTEOPOROSIS
     Dosage: 70 MG, QW
     Route: 048
  4. CENTRUM (MINERALS (UNSPECIFIED) (+) VITAMINS (UNSPECIFIED)) [Concomitant]
     Dosage: UNK
     Route: 048
     Dates: start: 1997
  5. CALCIUM (UNSPECIFIED) (+) VITAMIN D (UNSPECIFIED) [Concomitant]
     Dosage: UNK
     Route: 048
     Dates: start: 1997

REACTIONS (20)
  - Femur fracture [Not Recovered/Not Resolved]
  - Left ventricular hypertrophy [Unknown]
  - Medical device complication [Unknown]
  - Sinus bradycardia [Unknown]
  - Ventricular extrasystoles [Unknown]
  - Open reduction of fracture [Not Recovered/Not Resolved]
  - Ankle fracture [Unknown]
  - Fall [Unknown]
  - Arrhythmia supraventricular [Not Recovered/Not Resolved]
  - Osteopenia [Unknown]
  - Steroid therapy [Unknown]
  - Arteriosclerosis coronary artery [Unknown]
  - Peripheral arterial occlusive disease [Unknown]
  - Myopia [Unknown]
  - Mitral valve disease [Unknown]
  - Arthropathy [Unknown]
  - Laceration [Unknown]
  - Foot fracture [Recovered/Resolved]
  - Exostosis [Unknown]
  - Arthralgia [Not Recovered/Not Resolved]
